FAERS Safety Report 8490466-2 (Version None)
Quarter: 2012Q3

REPORT INFORMATION
  Report Type: 
  Country: None (occurrence: None)
  Receive Date: 20120705
  Receipt Date: 20120627
  Transmission Date: 20120928
  Serious: Yes (Other)
  Sender: FDA-Public Use
  Company Number: BR-SANOFI-AVENTIS-2012SA046168

PATIENT
  Age: 71 Year
  Sex: Female

DRUGS (2)
  1. AUTOPEN 24 [Suspect]
     Indication: DEVICE THERAPY
     Dates: start: 19990101
  2. LANTUS [Suspect]
     Route: 058
     Dates: start: 19990101

REACTIONS (2)
  - LIMB INJURY [None]
  - TENDON INJURY [None]
